FAERS Safety Report 23255092 (Version 1)
Quarter: 2023Q4

REPORT INFORMATION
  Report Type: Spontaneous
  Country: US (occurrence: US)
  Receive Date: 20231203
  Receipt Date: 20231203
  Transmission Date: 20240109
  Serious: Yes (Other)
  Sender: FDA-Public Use
  Company Number: US-AMNEAL PHARMACEUTICALS-2023-AMRX-00940

PATIENT
  Age: 17 Year
  Weight: 79.819 kg

DRUGS (1)
  1. ISOTRETINOIN [Suspect]
     Active Substance: ISOTRETINOIN
     Indication: Acne
     Dosage: UNK
     Route: 065
     Dates: start: 202211, end: 20230317

REACTIONS (2)
  - Suicidal ideation [Unknown]
  - Mood swings [Unknown]

NARRATIVE: CASE EVENT DATE: 20230301
